FAERS Safety Report 9206283 (Version 2)
Quarter: 2013Q2

REPORT INFORMATION
  Report Type: Spontaneous
  Country: ZA (occurrence: ZA)
  Receive Date: 20130403
  Receipt Date: 20130411
  Transmission Date: 20140414
  Serious: Yes (Hospitalization, Other)
  Sender: FDA-Public Use
  Company Number: PHHY2013ZA030610

PATIENT
  Age: 64 Year
  Sex: Female
  Weight: 108 kg

DRUGS (14)
  1. GALVUS [Suspect]
     Indication: DIABETES MELLITUS
     Dosage: 50 MG, BID
     Dates: start: 20110415
  2. EXFORGE [Suspect]
     Indication: HYPERTENSION
     Dosage: 1 DF, UNK (160/5 MG)
     Dates: start: 20100813
  3. EXFORGE [Suspect]
     Dosage: 1 DF, UNK (160/10 MG)
  4. LANTUS [Concomitant]
     Indication: DIABETES MELLITUS
     Dosage: 43 U, IN EVENING (100U HUMAN INSULIN/ML)
  5. GLUCOPHAGE [Concomitant]
     Indication: DIABETES MELLITUS
     Dosage: 1000 MG, UNK
  6. CRESTOR [Concomitant]
     Dosage: 10 MG, UNK
  7. APIDRA [Concomitant]
     Indication: DIABETES MELLITUS
     Dosage: 3 DF, TID
  8. CORALAN [Concomitant]
     Dosage: 7.5 MG, UNK
  9. ELTROXIN [Concomitant]
     Indication: HYPOTHYROIDISM
     Dosage: 0.1 MG, UNK
  10. SPIRACTIN [Concomitant]
     Indication: HYPERTENSION
     Dosage: 25 MG, UNK
  11. DISPRIN [Concomitant]
  12. NUZAK [Concomitant]
     Dosage: 20 MG, UNK
  13. TREPILINE [Concomitant]
     Dosage: 25 MG, UNK
  14. LANCAP [Concomitant]

REACTIONS (6)
  - Diabetes mellitus inadequate control [Unknown]
  - Peroneal nerve palsy [Unknown]
  - Neuropathy peripheral [Unknown]
  - Glycosylated haemoglobin increased [Unknown]
  - Tongue discolouration [Unknown]
  - Fatigue [Unknown]
